FAERS Safety Report 15149416 (Version 1)
Quarter: 2018Q3

REPORT INFORMATION
  Report Type: Spontaneous
  Country: US (occurrence: US)
  Receive Date: 20180619
  Receipt Date: 20180619
  Transmission Date: 20181010
  Serious: Yes (Hospitalization)
  Sender: FDA-Public Use
  Company Number: None

PATIENT
  Age: 58 Year
  Sex: Male

DRUGS (14)
  1. PANTOPRAZOLE [Concomitant]
     Active Substance: PANTOPRAZOLE
  2. MYCOPHENOLAT [Suspect]
     Active Substance: MYCOPHENOLATE MOFETIL
     Indication: RENAL TRANSPLANT
     Route: 048
     Dates: start: 20100607
  3. TYLENOL [Concomitant]
     Active Substance: ACETAMINOPHEN
  4. TACROLIMUS. [Concomitant]
     Active Substance: TACROLIMUS
  5. AMLIDIPINE [Concomitant]
  6. IRON [Concomitant]
     Active Substance: IRON
  7. FUROSEMIDE. [Concomitant]
     Active Substance: FUROSEMIDE
  8. ASPIRIN. [Concomitant]
     Active Substance: ASPIRIN
  9. SODIUM [Concomitant]
     Active Substance: SODIUM
  10. TAMSULOSIN [Concomitant]
     Active Substance: TAMSULOSIN
  11. METOPROLOL. [Concomitant]
     Active Substance: METOPROLOL
  12. PROBIOTIC [Concomitant]
     Active Substance: PROBIOTICS NOS
  13. MULTIVITAMINS [Concomitant]
     Active Substance: VITAMINS
  14. FLOMAX [Concomitant]
     Active Substance: TAMSULOSIN HYDROCHLORIDE

REACTIONS (1)
  - Urinary tract infection [None]

NARRATIVE: CASE EVENT DATE: 20180610
